FAERS Safety Report 17564100 (Version 3)
Quarter: 2020Q2

REPORT INFORMATION
  Report Type: Spontaneous
  Country: US (occurrence: US)
  Receive Date: 20200320
  Receipt Date: 20200405
  Transmission Date: 20200713
  Serious: Yes (Other)
  Sender: FDA-Public Use
  Company Number: US-ACCORD-176096

PATIENT
  Age: 33 Year
  Sex: Male

DRUGS (2)
  1. MYCOPHENOLIC ACID. [Suspect]
     Active Substance: MYCOPHENOLIC ACID
     Indication: IMMUNOSUPPRESSION
  2. PREDNISONE. [Suspect]
     Active Substance: PREDNISONE
     Indication: IMMUNOSUPPRESSION

REACTIONS (4)
  - Human anaplasmosis [Recovered/Resolved]
  - Human ehrlichiosis [Recovered/Resolved]
  - Epstein-Barr virus infection [Recovered/Resolved]
  - Lyme disease [Recovered/Resolved]
